FAERS Safety Report 21333444 (Version 1)
Quarter: 2022Q3

REPORT INFORMATION
  Report Type: Spontaneous
  Country: US (occurrence: US)
  Receive Date: 20220914
  Receipt Date: 20220914
  Transmission Date: 20221026
  Serious: No
  Sender: FDA-Public Use
  Company Number: US-GILEAD-2022-0597207

PATIENT
  Sex: Female

DRUGS (10)
  1. EPCLUSA [Suspect]
     Active Substance: SOFOSBUVIR\VELPATASVIR
     Indication: Chronic hepatitis C
     Dosage: 1 DOSAGE FORM, QD
     Route: 048
     Dates: start: 20220825
  2. ASPIRIN [Concomitant]
     Active Substance: ASPIRIN
  3. BENZTROPINE MESYLATE [Concomitant]
     Active Substance: BENZTROPINE MESYLATE
  4. CARAFATE [Concomitant]
     Active Substance: SUCRALFATE
  5. DICYCLOMINE HYDROCHLORIDE [Concomitant]
     Active Substance: DICYCLOMINE HYDROCHLORIDE
  6. GABAPENTIN [Concomitant]
     Active Substance: GABAPENTIN
  7. JANUMET [Concomitant]
     Active Substance: METFORMIN HYDROCHLORIDE\SITAGLIPTIN PHOSPHATE
  8. LISINOPRIL [Concomitant]
     Active Substance: LISINOPRIL
  9. PEPCID [Concomitant]
     Active Substance: FAMOTIDINE
  10. TRAZODONE HYDROCHLORIDE [Concomitant]
     Active Substance: TRAZODONE HYDROCHLORIDE

REACTIONS (3)
  - Headache [Unknown]
  - Nausea [Unknown]
  - Dry mouth [Unknown]
